FAERS Safety Report 17420611 (Version 2)
Quarter: 2020Q1

REPORT INFORMATION
  Report Type: Report from Study
  Country: US (occurrence: US)
  Receive Date: 20200214
  Receipt Date: 20200303
  Transmission Date: 20200409
  Serious: Yes (Other)
  Sender: FDA-Public Use
  Company Number: US-ROCHE-2549367

PATIENT
  Sex: Male

DRUGS (1)
  1. OCREVUS [Suspect]
     Active Substance: OCRELIZUMAB
     Indication: PRIMARY PROGRESSIVE MULTIPLE SCLEROSIS
     Dosage: DATE OF TREATMENTS: 28/DEC/2018, 30/JUN/2017, 16/JUN/2017, 12/JUL/2019, 12/JUL/2018, 21/DEC/2017
     Route: 065
     Dates: start: 20170616

REACTIONS (1)
  - Urinary tract infection [Not Recovered/Not Resolved]
